FAERS Safety Report 12948547 (Version 1)
Quarter: 2016Q4

REPORT INFORMATION
  Report Type: Spontaneous
  Country: US (occurrence: US)
  Receive Date: 20161117
  Receipt Date: 20161117
  Transmission Date: 20170207
  Serious: No
  Sender: FDA-Public Use
  Company Number: US-BEH-2016075351

PATIENT
  Age: 55 Year
  Sex: Female
  Weight: 63.49 kg

DRUGS (22)
  1. LIDOCAINE W/PRILOCAINE [Concomitant]
  2. FLUNISOLIDE. [Concomitant]
     Active Substance: FLUNISOLIDE
  3. IBUPROFEN. [Concomitant]
     Active Substance: IBUPROFEN
  4. SERTRALINE [Concomitant]
     Active Substance: SERTRALINE HYDROCHLORIDE
  5. SIMVASTATIN. [Concomitant]
     Active Substance: SIMVASTATIN
  6. METOPROLOL. [Concomitant]
     Active Substance: METOPROLOL
  7. MELATONIN [Concomitant]
     Active Substance: MELATONIN
  8. SPIRIVA [Concomitant]
     Active Substance: TIOTROPIUM BROMIDE MONOHYDRATE
  9. DIOVAN [Concomitant]
     Active Substance: VALSARTAN
  10. DIPHENHYDRAMINE. [Concomitant]
     Active Substance: DIPHENHYDRAMINE
  11. FIBER [Concomitant]
     Active Substance: PSYLLIUM HUSK
  12. MULTIVITAMINS, PLAIN [Concomitant]
     Active Substance: VITAMINS
  13. SODIUM CHLORIDE. [Concomitant]
     Active Substance: SODIUM CHLORIDE
  14. FLAXSEED [Concomitant]
     Active Substance: FLAX SEED
  15. ZEMAIRA [Suspect]
     Active Substance: .ALPHA.1-PROTEINASE INHIBITOR HUMAN
     Indication: COMPLEMENT FACTOR ABNORMAL
     Dosage: 60 MG/KG, QW
     Route: 042
     Dates: start: 20070307
  16. HEPARIN [Concomitant]
     Active Substance: HEPARIN SODIUM
  17. ADVAIR HFA [Concomitant]
     Active Substance: FLUTICASONE PROPIONATE\SALMETEROL XINAFOATE
  18. CALCIUM                            /00060701/ [Concomitant]
     Active Substance: CALCIUM
  19. EPIPEN [Concomitant]
     Active Substance: EPINEPHRINE
  20. VITAMIN D                          /00107901/ [Concomitant]
     Active Substance: ERGOCALCIFEROL
  21. LOTRIMIN [Concomitant]
     Active Substance: CLOTRIMAZOLE
  22. ASPIRIN (E.C.) [Concomitant]
     Active Substance: ASPIRIN

REACTIONS (2)
  - Hypertension [Unknown]
  - Dizziness [Unknown]
